FAERS Safety Report 7323039 (Version 4)
Quarter: 2013Q1

REPORT INFORMATION
  Report Type: Spontaneous
  Country: DE (occurrence: DE)
  Receive Date: 20100317
  Receipt Date: 20130325
  Transmission Date: 20140127
  Serious: Yes (Hospitalization, Other)
  Sender: FDA-Public Use
  Company Number: DE-RB-004701-10

PATIENT
  Age: 32 Year
  Sex: Female

DRUGS (2)
  1. SUBOXONE [Suspect]
     Indication: DRUG THERAPY
     Route: 065
  2. SUBUTEX [Suspect]
     Indication: DRUG THERAPY
     Dosage: DOSING INFORMATION UNKNOWN
     Route: 065

REACTIONS (7)
  - Exposure during pregnancy [Recovered/Resolved]
  - Foetal growth restriction [Recovered/Resolved]
  - Premature rupture of membranes [Recovered/Resolved]
  - Amniotic cavity infection [Recovered/Resolved]
  - Foetal death [Recovered/Resolved]
  - Premature delivery [Recovered/Resolved]
  - Oligohydramnios [Recovered/Resolved]
